FAERS Safety Report 5150821-5 (Version None)
Quarter: 2006Q4

REPORT INFORMATION
  Report Type: 
  Country: None (occurrence: None)
  Receive Date: 20061108
  Receipt Date: 20061025
  Transmission Date: 20070319
  Serious: Yes (Other)
  Sender: FDA-Public Use
  Company Number: 149295ISR

PATIENT
  Age: 34 Year
  Sex: Male

DRUGS (1)
  1. AMITRIPTYLINE HCL [Suspect]
     Indication: NEURALGIA
     Dosage: (25 MG); ORAL
     Route: 048
     Dates: start: 20060301

REACTIONS (1)
  - TEETH BRITTLE [None]
